FAERS Safety Report 19110380 (Version 1)
Quarter: 2021Q2

REPORT INFORMATION
  Report Type: Spontaneous
  Country: PL (occurrence: PL)
  Receive Date: 20210409
  Receipt Date: 20210409
  Transmission Date: 20210717
  Serious: Yes (Death)
  Sender: FDA-Public Use
  Company Number: PL-ROCHE-2808210

PATIENT
  Age: 65 Year
  Sex: Male
  Weight: 101 kg

DRUGS (4)
  1. REMDESIVIR. [Concomitant]
     Active Substance: REMDESIVIR
  2. OXYGEN. [Concomitant]
     Active Substance: OXYGEN
  3. ROACTEMRA [Suspect]
     Active Substance: TOCILIZUMAB
     Indication: COVID-19
     Dosage: (4 VIALS OF 200 MG)
     Route: 042
     Dates: start: 20210331, end: 20210331
  4. PLASMA [Concomitant]
     Active Substance: HUMAN PLASMA

REACTIONS (2)
  - Quadriparesis [Fatal]
  - Off label use [Unknown]

NARRATIVE: CASE EVENT DATE: 20210331
